FAERS Safety Report 10252492 (Version 1)
Quarter: 2014Q2

REPORT INFORMATION
  Report Type: Spontaneous
  Country: US (occurrence: US)
  Receive Date: 20140623
  Receipt Date: 20140623
  Transmission Date: 20141212
  Serious: Yes (Death, Other)
  Sender: FDA-Public Use
  Company Number: US-009507513-1406USA009664

PATIENT
  Sex: Female

DRUGS (2)
  1. JANUVIA [Suspect]
     Dosage: UNK
     Route: 048
     Dates: start: 20091028, end: 201111
  2. JANUMET [Suspect]
     Dosage: UNK
     Route: 048
     Dates: start: 20120417, end: 201205

REACTIONS (1)
  - Pancreatic carcinoma [Fatal]
